FAERS Safety Report 24938857 (Version 1)
Quarter: 2025Q1

REPORT INFORMATION
  Report Type: Spontaneous
  Country: JP (occurrence: JP)
  Receive Date: 20250206
  Receipt Date: 20250206
  Transmission Date: 20250408
  Serious: Yes (Hospitalization, Other)
  Sender: SANDOZ
  Company Number: JP-ONO-2024JP014432

PATIENT
  Sex: Female

DRUGS (4)
  1. RIVASTIGMINE [Suspect]
     Active Substance: RIVASTIGMINE
     Indication: Dementia Alzheimer^s type
     Route: 062
  2. RIVASTIGMINE [Suspect]
     Active Substance: RIVASTIGMINE
     Route: 062
  3. ORENCIA [Concomitant]
     Active Substance: ABATACEPT
     Indication: Rheumatoid arthritis
     Route: 041
  4. ORENCIA [Concomitant]
     Active Substance: ABATACEPT
     Route: 041

REACTIONS (7)
  - Deafness [Unknown]
  - Hallucination, visual [Unknown]
  - Aggression [Unknown]
  - Decreased appetite [Unknown]
  - Adverse reaction [Unknown]
  - Dementia [Unknown]
  - Irritability [Unknown]
